FAERS Safety Report 19998189 (Version 1)
Quarter: 2021Q4

REPORT INFORMATION
  Report Type: Spontaneous
  Country: NL (occurrence: NL)
  Receive Date: 20211026
  Receipt Date: 20211026
  Transmission Date: 20220303
  Serious: Yes (Other)
  Sender: FDA-Public Use
  Company Number: NL-SA-2021SA229897

PATIENT
  Age: 53 Year
  Sex: Female

DRUGS (6)
  1. MYCOPHENOLATE MOFETIL [Suspect]
     Active Substance: MYCOPHENOLATE MOFETIL
     Indication: Antiphospholipid syndrome
     Dosage: 1000 MILLIGRAM, BID
  2. CYCLOPHOSPHAMIDE [Suspect]
     Active Substance: CYCLOPHOSPHAMIDE
     Indication: Antiphospholipid syndrome
     Dosage: 1250 MG, 3 TIMES ONCE A MONTH
  3. RITUXIMAB [Suspect]
     Active Substance: RITUXIMAB
     Indication: Antiphospholipid syndrome
     Dosage: 375 MG/M2, QW (4 TIMES 375 MG/M2 ONCE A WEEK)
  4. HYDROXYCHLOROQUINE SULFATE [Suspect]
     Active Substance: HYDROXYCHLOROQUINE SULFATE
     Indication: Antiphospholipid syndrome
     Dosage: 400 MILLIGRAM, QD
  5. UNSPECIFIED INGREDIENT [Concomitant]
     Active Substance: UNSPECIFIED INGREDIENT
     Indication: Antiphospholipid syndrome
     Dosage: UNK
  6. PHENPROCOUMON [Concomitant]
     Active Substance: PHENPROCOUMON
     Indication: Antiphospholipid syndrome
     Dosage: UNK

REACTIONS (5)
  - Skin lesion [Recovered/Resolved]
  - Treatment failure [Recovered/Resolved]
  - Antiphospholipid syndrome [Recovered/Resolved]
  - Disease progression [Recovered/Resolved]
  - Off label use [Unknown]
